FAERS Safety Report 15075787 (Version 1)
Quarter: 2018Q2

REPORT INFORMATION
  Report Type: Spontaneous
  Country: US (occurrence: US)
  Receive Date: 20180627
  Receipt Date: 20180627
  Transmission Date: 20180711
  Serious: No
  Sender: FDA-Public Use
  Company Number: US-SA-2018SA171043

PATIENT
  Sex: Female

DRUGS (21)
  1. FLUOCINONIDE. [Concomitant]
     Active Substance: FLUOCINONIDE
  2. FOLIC ACID. [Concomitant]
     Active Substance: FOLIC ACID
  3. PRESERVISION AREDS 2 [Concomitant]
     Active Substance: MINERALS\VITAMINS
  4. OSCAL [CALCITRIOL] [Concomitant]
  5. OXYMORPHONE [Concomitant]
     Active Substance: OXYMORPHONE
     Dosage: UNK
     Dates: start: 201802
  6. NEURONTIN [Concomitant]
     Active Substance: GABAPENTIN
  7. OXYCODONE [Concomitant]
     Active Substance: OXYCODONE
  8. BACLOFEN. [Concomitant]
     Active Substance: BACLOFEN
  9. BENICAR [Concomitant]
     Active Substance: OLMESARTAN MEDOXOMIL
  10. CALCIUM 500+D [Concomitant]
     Active Substance: CALCIUM\VITAMIN D
  11. KEVZARA [Suspect]
     Active Substance: SARILUMAB
     Indication: RHEUMATOID ARTHRITIS
     Dosage: 200 MG, QOW
     Dates: start: 2017
  12. MELOXICAM. [Concomitant]
     Active Substance: MELOXICAM
  13. PLAQUENIL [HYDROXYCHLOROQUINE SULFATE] [Concomitant]
  14. METHOTREXATE. [Concomitant]
     Active Substance: METHOTREXATE
  15. MYRBETRIQ [Concomitant]
     Active Substance: MIRABEGRON
  16. DIAZEPAM. [Concomitant]
     Active Substance: DIAZEPAM
  17. AMBIEN [Concomitant]
     Active Substance: ZOLPIDEM TARTRATE
  18. VIVELLE-DOT [Concomitant]
     Active Substance: ESTRADIOL
  19. FERROUS SULFATE. [Concomitant]
     Active Substance: FERROUS SULFATE
  20. PRENATAL VITAMINS [MINERALS NOS;VITAMINS NOS] [Concomitant]
  21. TRILEPTAL [Concomitant]
     Active Substance: OXCARBAZEPINE

REACTIONS (1)
  - Peripheral swelling [Not Recovered/Not Resolved]
